FAERS Safety Report 9174136 (Version 1)
Quarter: 2013Q1

REPORT INFORMATION
  Report Type: Spontaneous
  Country: FR (occurrence: None)
  Receive Date: 20130315
  Receipt Date: 20130315
  Transmission Date: 20140127
  Serious: Yes (Hospitalization)
  Sender: FDA-Public Use
  Company Number: AUR-APL-2013-02212

PATIENT
  Age: 48 Year
  Sex: Female

DRUGS (7)
  1. RAMIPRIL (RAMIPRIL) [Suspect]
     Indication: HYPERTENSION
     Route: 048
     Dates: start: 201205, end: 20120825
  2. NOVATREX (METHOTREXATE) [Suspect]
     Indication: PRODUCT USED FOR UNKNOWN INDICATION
     Route: 048
     Dates: start: 1994, end: 20120825
  3. SPECIAFOLDINE (FOLIC ACID) [Concomitant]
  4. CORTANCYL (PREDNISONE) [Concomitant]
  5. STAGID (METFORMIN EMBONATE) [Concomitant]
  6. IXPRIM [Concomitant]
  7. FORLAX (MACROGOL) [Concomitant]

REACTIONS (3)
  - Hepatomegaly [None]
  - Cholelithiasis [None]
  - Hepatic steatosis [None]
